FAERS Safety Report 6156550-3 (Version None)
Quarter: 2009Q2

REPORT INFORMATION
  Report Type: 
  Country: None (occurrence: None)
  Receive Date: 20090416
  Receipt Date: 20090408
  Transmission Date: 20091009
  Serious: Yes (Hospitalization, Other)
  Sender: FDA-Public Use
  Company Number: FR-BAYER-200918312GPV

PATIENT
  Age: 36 Year
  Sex: Female

DRUGS (2)
  1. MIRENA [Suspect]
     Indication: CONTRACEPTION
     Route: 015
  2. ORELOX [Concomitant]
     Indication: INFLUENZA
     Dates: start: 20090215, end: 20090225

REACTIONS (2)
  - ECCHYMOSIS [None]
  - THROMBOCYTOPENIA [None]
